FAERS Safety Report 7606638-2 (Version None)
Quarter: 2011Q3

REPORT INFORMATION
  Report Type: 
  Country: None (occurrence: None)
  Receive Date: 20110705
  Receipt Date: 20110620
  Transmission Date: 20111222
  Serious: Yes (Other)
  Sender: FDA-Public Use
  Company Number: WAES 1106ESP00079

PATIENT
  Age: 44 Year
  Sex: Male

DRUGS (1)
  1. IMIPENEM AND CILASTATIN SODIUM [Suspect]
     Indication: ABDOMINAL INFECTION
     Dosage: 500-500 MG/Q8H, IV
     Route: 042
     Dates: start: 20101012

REACTIONS (3)
  - LUNG DISORDER [None]
  - ABDOMINAL ABSCESS [None]
  - POSTOPERATIVE WOUND INFECTION [None]
